FAERS Safety Report 18968324 (Version 1)
Quarter: 2021Q1

REPORT INFORMATION
  Report Type: Spontaneous
  Country: US (occurrence: US)
  Receive Date: 20210304
  Receipt Date: 20210304
  Transmission Date: 20210420
  Serious: No
  Sender: FDA-Public Use
  Company Number: US-CELGENEUS-USA-20210207292

PATIENT
  Sex: Male

DRUGS (3)
  1. THALOMID [Suspect]
     Active Substance: THALIDOMIDE
     Indication: OFF LABEL USE
  2. THALOMID [Suspect]
     Active Substance: THALIDOMIDE
     Indication: COLON DYSPLASIA
     Dosage: 100 MILLIGRAM
     Route: 048
     Dates: start: 20201230
  3. THALOMID [Suspect]
     Active Substance: THALIDOMIDE
     Indication: LARGE INTESTINAL HAEMORRHAGE
     Dosage: 100 MILLIGRAM
     Route: 048

REACTIONS (1)
  - Adverse drug reaction [Unknown]
